FAERS Safety Report 10181898 (Version 2)
Quarter: 2014Q2

REPORT INFORMATION
  Report Type: Spontaneous
  Country: US (occurrence: US)
  Receive Date: 20140519
  Receipt Date: 20140605
  Transmission Date: 20141212
  Serious: No
  Sender: FDA-Public Use
  Company Number: US-GILEAD-2014-0102590

PATIENT
  Sex: Female

DRUGS (2)
  1. LETAIRIS [Suspect]
     Indication: PRODUCT USED FOR UNKNOWN INDICATION
     Dosage: 10 MG, UNK
     Route: 065
  2. LETAIRIS [Suspect]
     Dosage: 5 MG, QD
     Route: 065
     Dates: start: 20140218

REACTIONS (3)
  - Anosmia [Unknown]
  - Ageusia [Unknown]
  - Nasal congestion [Unknown]
